FAERS Safety Report 20940364 (Version 2)
Quarter: 2022Q2

REPORT INFORMATION
  Report Type: Spontaneous
  Country: CZ (occurrence: CZ)
  Receive Date: 20220609
  Receipt Date: 20220616
  Transmission Date: 20220721
  Serious: Yes (Other)
  Sender: FDA-Public Use
  Company Number: CZ-NOVARTISPH-NVSC2022CZ130689

PATIENT
  Age: 60 Year
  Sex: Female

DRUGS (3)
  1. RIBOCICLIB [Suspect]
     Active Substance: RIBOCICLIB
     Indication: Invasive lobular breast carcinoma
     Dosage: 600 MG, QD (ON DAYS 1-21 IN A 28 DAY CYCLE)
     Route: 048
     Dates: start: 202012
  2. RIBOCICLIB [Suspect]
     Active Substance: RIBOCICLIB
     Dosage: 400 MG, QD (ON DAYS 1-21 IN A 28 DAY CYCLE)
     Route: 065
  3. LETROZOLE [Concomitant]
     Active Substance: LETROZOLE
     Indication: Invasive lobular breast carcinoma
     Dosage: 2.5 MG (CONTINUOUSLY)
     Route: 065
     Dates: start: 202012

REACTIONS (3)
  - Myelosuppression [Recovered/Resolved]
  - Neutropenia [Unknown]
  - Liver disorder [Recovered/Resolved]

NARRATIVE: CASE EVENT DATE: 20210201
